FAERS Safety Report 6944647-7 (Version None)
Quarter: 2010Q3

REPORT INFORMATION
  Report Type: 
  Country: None (occurrence: None)
  Receive Date: 20100827
  Receipt Date: 20100820
  Transmission Date: 20110219
  Serious: Yes (Other)
  Sender: FDA-Public Use
  Company Number: PHHY2010CA54432

PATIENT
  Sex: Female

DRUGS (7)
  1. ALISKIREN ALI+ [Suspect]
     Indication: HYPERTENSION
     Dosage: 150 MG DAILY
     Route: 048
     Dates: start: 20090702
  2. CALCIUM CHANNEL BLOCKERS [Concomitant]
  3. DIURETICS [Concomitant]
  4. ACE INHIBITOR NOS [Concomitant]
  5. PERINDOPRIL ERBUMINE [Concomitant]
  6. CADUET [Concomitant]
  7. MODECATE [Concomitant]

REACTIONS (3)
  - ACCIDENT [None]
  - ANKLE FRACTURE [None]
  - FALL [None]
